FAERS Safety Report 7150170-X (Version None)
Quarter: 2010Q4

REPORT INFORMATION
  Report Type: 
  Country: None (occurrence: None)
  Receive Date: 20101207
  Receipt Date: 20101207
  Transmission Date: 20110411
  Serious: No
  Sender: FDA-Public Use
  Company Number: None

PATIENT
  Age: 52 Year
  Sex: Female
  Weight: 57.1532 kg

DRUGS (4)
  1. XANAX [Suspect]
     Indication: AGORAPHOBIA
     Dosage: 1 MG, THREE TIMES A DAY
     Dates: start: 20030814, end: 20101206
  2. XANAX [Suspect]
     Indication: ANXIETY
     Dosage: 1 MG, THREE TIMES A DAY
     Dates: start: 20030814, end: 20101206
  3. GREENSTONE 1MG GREENSTONE [Suspect]
     Indication: ANXIETY
     Dosage: 1MG 3TIMES ADAY
     Dates: start: 20030819, end: 20101206
  4. GREENSTONE 1MG GREENSTONE [Suspect]
     Indication: PANIC DISORDER
     Dosage: 1MG 3TIMES ADAY
     Dates: start: 20030819, end: 20101206

REACTIONS (6)
  - DIARRHOEA [None]
  - DRUG INEFFECTIVE [None]
  - INSOMNIA [None]
  - MALAISE [None]
  - PRODUCT SUBSTITUTION ISSUE [None]
  - TREMOR [None]
